FAERS Safety Report 21167462 (Version 1)
Quarter: 2022Q3

REPORT INFORMATION
  Report Type: Spontaneous
  Country: CA (occurrence: CA)
  Receive Date: 20220803
  Receipt Date: 20220803
  Transmission Date: 20221026
  Serious: Yes (Hospitalization, Other)
  Sender: FDA-Public Use
  Company Number: CA-SA-SAC20220727001821

PATIENT
  Age: 56 Year
  Sex: Female

DRUGS (92)
  1. TRIAMCINOLONE ACETONIDE [Suspect]
     Active Substance: TRIAMCINOLONE ACETONIDE
     Indication: Product used for unknown indication
     Dosage: UNK
     Route: 014
  2. ARAVA [Suspect]
     Active Substance: LEFLUNOMIDE
     Indication: Rheumatoid arthritis
     Dosage: 20 MG, QD
     Route: 048
  3. ARAVA [Suspect]
     Active Substance: LEFLUNOMIDE
     Dosage: UNK
     Route: 048
  4. ARAVA [Suspect]
     Active Substance: LEFLUNOMIDE
     Dosage: UNK
     Route: 065
  5. HYDROXYCHLOROQUINE SULFATE [Suspect]
     Active Substance: HYDROXYCHLOROQUINE SULFATE
     Indication: Rheumatoid arthritis
     Dosage: 300 MG, QD
     Route: 048
  6. HYDROXYCHLOROQUINE SULFATE [Suspect]
     Active Substance: HYDROXYCHLOROQUINE SULFATE
     Dosage: 300 MG, QH
     Route: 048
  7. HYDROXYCHLOROQUINE SULFATE [Suspect]
     Active Substance: HYDROXYCHLOROQUINE SULFATE
     Dosage: 1 DF
     Route: 065
  8. HYDROXYCHLOROQUINE SULFATE [Suspect]
     Active Substance: HYDROXYCHLOROQUINE SULFATE
     Dosage: 200 MG, BID
     Route: 048
  9. HYDROXYCHLOROQUINE SULFATE [Suspect]
     Active Substance: HYDROXYCHLOROQUINE SULFATE
     Dosage: UNK
     Route: 048
  10. HYDROXYCHLOROQUINE SULFATE [Suspect]
     Active Substance: HYDROXYCHLOROQUINE SULFATE
     Dosage: 20 MG, BID
     Route: 065
  11. LEFLUNOMIDE [Suspect]
     Active Substance: LEFLUNOMIDE
     Indication: Rheumatoid arthritis
     Dosage: 20 MG, QD
     Route: 048
  12. LEFLUNOMIDE [Suspect]
     Active Substance: LEFLUNOMIDE
     Dosage: 1 DF, QD
     Route: 065
  13. LEFLUNOMIDE [Suspect]
     Active Substance: LEFLUNOMIDE
     Dosage: 20 MG, QH
     Route: 048
  14. LEFLUNOMIDE [Suspect]
     Active Substance: LEFLUNOMIDE
     Dosage: 20 MG
     Route: 048
  15. LEFLUNOMIDE [Suspect]
     Active Substance: LEFLUNOMIDE
     Dosage: 20 MG, QD
     Route: 065
  16. NAPROXEN [Suspect]
     Active Substance: NAPROXEN
     Indication: Product used for unknown indication
     Dosage: 500 MG
     Route: 065
  17. NAPROXEN [Suspect]
     Active Substance: NAPROXEN
     Dosage: 50 MG
     Route: 065
  18. METHOTREXATE [Suspect]
     Active Substance: METHOTREXATE
     Indication: Rheumatoid arthritis
     Dosage: 15 MG
     Route: 058
  19. METHOTREXATE [Suspect]
     Active Substance: METHOTREXATE
     Dosage: 20 MG
     Route: 058
  20. METHOTREXATE [Suspect]
     Active Substance: METHOTREXATE
     Dosage: 17.5 MG
     Route: 058
  21. METHOTREXATE [Suspect]
     Active Substance: METHOTREXATE
     Dosage: 15 MG, QOW
     Route: 058
  22. METHOTREXATE [Suspect]
     Active Substance: METHOTREXATE
     Dosage: UNK
     Route: 065
  23. FOLIC ACID [Suspect]
     Active Substance: FOLIC ACID
     Indication: Rheumatoid arthritis
     Dosage: 500 MG
     Route: 065
  24. CELECOXIB [Suspect]
     Active Substance: CELECOXIB
     Indication: Rheumatoid arthritis
     Dosage: 200 MG
     Route: 048
  25. CETIRIZINE HYDROCHLORIDE [Suspect]
     Active Substance: CETIRIZINE HYDROCHLORIDE
     Indication: Rheumatoid arthritis
     Dosage: UNK
     Route: 065
  26. DESOXIMETASONE [Suspect]
     Active Substance: DESOXIMETASONE
     Indication: Rheumatoid arthritis
     Dosage: UNK
     Route: 048
  27. PREDNISONE [Suspect]
     Active Substance: PREDNISONE
     Indication: Product used for unknown indication
     Dosage: 5 MG, BID
     Route: 048
  28. PREDNISONE [Suspect]
     Active Substance: PREDNISONE
     Dosage: 3 MG, BID
     Route: 048
  29. PREDNISONE [Suspect]
     Active Substance: PREDNISONE
     Dosage: 1.5 MG
     Route: 048
  30. PREDNISONE [Suspect]
     Active Substance: PREDNISONE
     Dosage: UNK
     Route: 065
  31. RISEDRONATE SODIUM [Suspect]
     Active Substance: RISEDRONATE SODIUM
     Indication: Product used for unknown indication
     Dosage: 35 MG, QW
     Route: 048
  32. RISEDRONATE SODIUM [Suspect]
     Active Substance: RISEDRONATE SODIUM
     Dosage: 35 MG, QW
     Route: 065
  33. RISEDRONATE SODIUM [Suspect]
     Active Substance: RISEDRONATE SODIUM
     Dosage: UNK
     Route: 065
  34. ALENDRONATE SODIUM [Suspect]
     Active Substance: ALENDRONATE SODIUM
     Indication: Rheumatoid arthritis
     Dosage: UNK
     Route: 065
  35. HYDROXYCHLOROQUINE [Suspect]
     Active Substance: HYDROXYCHLOROQUINE
     Indication: Rheumatoid arthritis
     Dosage: 1 DF, QD
     Route: 065
  36. HYDROXYCHLOROQUINE [Suspect]
     Active Substance: HYDROXYCHLOROQUINE
     Dosage: 5 MG, QD
     Route: 048
  37. HYDROXYCHLOROQUINE [Suspect]
     Active Substance: HYDROXYCHLOROQUINE
     Dosage: 20 MG
     Route: 048
  38. HYDROXYCHLOROQUINE [Suspect]
     Active Substance: HYDROXYCHLOROQUINE
     Dosage: UNK
     Route: 065
  39. HYDROXYCHLOROQUINE [Suspect]
     Active Substance: HYDROXYCHLOROQUINE
     Dosage: 300 MG, QD
     Route: 065
  40. SULFASALAZINE [Suspect]
     Active Substance: SULFASALAZINE
     Indication: Rheumatoid arthritis
     Dosage: 500 MG
     Route: 065
  41. SULFASALAZINE [Suspect]
     Active Substance: SULFASALAZINE
     Dosage: 250 MG, QW
     Route: 048
  42. ACTEMRA [Suspect]
     Active Substance: TOCILIZUMAB
     Indication: Rheumatoid arthritis
     Dosage: UNK
     Route: 058
  43. ACTEMRA [Suspect]
     Active Substance: TOCILIZUMAB
     Dosage: 200 MG, QW
     Route: 042
  44. ACTEMRA [Suspect]
     Active Substance: TOCILIZUMAB
     Dosage: 280 MG, QOW
     Route: 042
  45. ACTEMRA [Suspect]
     Active Substance: TOCILIZUMAB
     Dosage: 8 MG/KG
     Route: 042
  46. ACTEMRA [Suspect]
     Active Substance: TOCILIZUMAB
     Dosage: 280 MG
     Route: 042
  47. ACTEMRA [Suspect]
     Active Substance: TOCILIZUMAB
     Dosage: 200 MG, QOW
     Route: 042
  48. ADALIMUMAB [Suspect]
     Active Substance: ADALIMUMAB
     Indication: Rheumatoid arthritis
     Dosage: 40 MG, QOW
     Route: 058
  49. ADALIMUMAB [Suspect]
     Active Substance: ADALIMUMAB
     Dosage: 40 MG
     Route: 058
  50. ANAKINRA [Suspect]
     Active Substance: ANAKINRA
     Indication: Rheumatoid arthritis
     Dosage: 50 MG, QD
     Route: 058
  51. ANAKINRA [Suspect]
     Active Substance: ANAKINRA
     Dosage: UNK
     Route: 048
  52. ANAKINRA [Suspect]
     Active Substance: ANAKINRA
     Dosage: 100 MG
     Route: 058
  53. ANAKINRA [Suspect]
     Active Substance: ANAKINRA
     Dosage: UNK
     Route: 058
  54. LEFLUNOMIDE [Suspect]
     Active Substance: LEFLUNOMIDE
     Indication: Rheumatoid arthritis
     Dosage: 20 MG
     Route: 065
  55. LEFLUNOMIDE [Suspect]
     Active Substance: LEFLUNOMIDE
     Dosage: 20 MG, QD
     Route: 048
  56. LEFLUNOMIDE [Suspect]
     Active Substance: LEFLUNOMIDE
     Dosage: 20 MG, QH
     Route: 048
  57. LEFLUNOMIDE [Suspect]
     Active Substance: LEFLUNOMIDE
     Dosage: 20 MG, QD
     Route: 048
  58. CIMZIA [Suspect]
     Active Substance: CERTOLIZUMAB PEGOL
     Indication: Rheumatoid arthritis
     Dosage: UNK
     Route: 058
  59. CIMZIA [Suspect]
     Active Substance: CERTOLIZUMAB PEGOL
     Indication: Psoriasis
  60. CORTISONE ACETATE [Suspect]
     Active Substance: CORTISONE ACETATE
     Indication: Product used for unknown indication
     Dosage: UNK
     Route: 061
  61. ERELZI [Suspect]
     Active Substance: ETANERCEPT-SZZS
     Indication: Rheumatoid arthritis
     Dosage: 25 MG, QW
     Route: 065
  62. ERELZI [Suspect]
     Active Substance: ETANERCEPT-SZZS
     Dosage: 50 MG
     Route: 058
  63. ERELZI [Suspect]
     Active Substance: ETANERCEPT-SZZS
     Dosage: 12.5 MG, QW
     Route: 058
  64. ERELZI [Suspect]
     Active Substance: ETANERCEPT-SZZS
     Dosage: 25 MG, BIW
     Route: 058
  65. ERELZI [Suspect]
     Active Substance: ETANERCEPT-SZZS
     Dosage: 25 MG
     Route: 065
  66. ERELZI [Suspect]
     Active Substance: ETANERCEPT-SZZS
     Dosage: 25 MG, QOW
     Route: 065
  67. GOLD [Suspect]
     Active Substance: GOLD
     Indication: Product used for unknown indication
     Dosage: UNK
     Route: 065
  68. HUMAN IMMUNOGLOBULIN G [Suspect]
     Active Substance: HUMAN IMMUNOGLOBULIN G
     Indication: Product used for unknown indication
     Dosage: 70 G
     Route: 042
  69. INFLIXIMAB [Suspect]
     Active Substance: INFLIXIMAB
     Indication: Product used for unknown indication
     Dosage: 5 MG/KG
     Route: 042
  70. INFLIXIMAB [Suspect]
     Active Substance: INFLIXIMAB
     Dosage: 3 MG/KG
     Route: 042
  71. ORENCIA [Suspect]
     Active Substance: ABATACEPT
     Indication: Rheumatoid arthritis
     Dosage: 150 MG, QW
     Route: 058
  72. ORENCIA [Suspect]
     Active Substance: ABATACEPT
     Dosage: 250 MG, QM
     Route: 042
  73. ORENCIA [Suspect]
     Active Substance: ABATACEPT
     Dosage: 750 MG
     Route: 042
  74. ORENCIA [Suspect]
     Active Substance: ABATACEPT
     Dosage: 250 MG
     Route: 042
  75. ORENCIA [Suspect]
     Active Substance: ABATACEPT
     Dosage: UNK
     Route: 065
  76. PHTHALYLSULFATHIAZOLE [Suspect]
     Active Substance: PHTHALYLSULFATHIAZOLE
     Indication: Rheumatoid arthritis
     Dosage: UNK
     Route: 065
  77. REMICADE [Suspect]
     Active Substance: INFLIXIMAB
     Indication: Rheumatoid arthritis
     Dosage: 30 MG
     Route: 042
  78. REMICADE [Suspect]
     Active Substance: INFLIXIMAB
     Dosage: 35 MG
     Route: 042
  79. REMICADE [Suspect]
     Active Substance: INFLIXIMAB
     Dosage: 5 MG/KG
     Route: 042
  80. RISEDRONIC ACID [Suspect]
     Active Substance: RISEDRONIC ACID
     Indication: Product used for unknown indication
     Dosage: UNK
  81. RITUXIMAB [Suspect]
     Active Substance: RITUXIMAB
     Indication: Rheumatoid arthritis
     Dosage: UNK
     Route: 058
  82. RITUXIMAB [Suspect]
     Active Substance: RITUXIMAB
     Dosage: 1 G
     Route: 042
  83. RITUXIMAB [Suspect]
     Active Substance: RITUXIMAB
     Dosage: 1 MG
     Route: 042
  84. RITUXIMAB [Suspect]
     Active Substance: RITUXIMAB
     Dosage: 1000 MG
     Route: 042
  85. SIMPONI [Suspect]
     Active Substance: GOLIMUMAB
     Indication: Rheumatoid arthritis
     Dosage: 50 MG, QM
     Route: 058
  86. SIMPONI [Suspect]
     Active Substance: GOLIMUMAB
     Dosage: 50 MG, QW
     Route: 058
  87. TOCILIZUMAB [Suspect]
     Active Substance: TOCILIZUMAB
     Indication: Rheumatoid arthritis
     Dosage: UNK
     Route: 065
  88. TRIAMCINOLONE [Suspect]
     Active Substance: TRIAMCINOLONE
     Indication: Product used for unknown indication
     Dosage: UNK
     Route: 065
  89. XELJANZ [Suspect]
     Active Substance: TOFACITINIB CITRATE
     Indication: Rheumatoid arthritis
     Dosage: 5 MG, BID
     Route: 048
  90. XELJANZ [Suspect]
     Active Substance: TOFACITINIB CITRATE
     Dosage: 5 MG, QD
     Route: 048
  91. RISEDRONATE SODIUM [Concomitant]
     Active Substance: RISEDRONATE SODIUM
     Indication: Product used for unknown indication
     Dosage: 35 MG, QW
     Route: 065
  92. WELLBUTRIN [Concomitant]
     Active Substance: BUPROPION HYDROCHLORIDE
     Dosage: UNK

REACTIONS (60)
  - Abdominal discomfort [Not Recovered/Not Resolved]
  - Abdominal pain [Not Recovered/Not Resolved]
  - Adrenal insufficiency [Not Recovered/Not Resolved]
  - Alopecia [Not Recovered/Not Resolved]
  - Arthropathy [Not Recovered/Not Resolved]
  - Condition aggravated [Not Recovered/Not Resolved]
  - Diarrhoea [Not Recovered/Not Resolved]
  - Dizziness [Not Recovered/Not Resolved]
  - Drug hypersensitivity [Not Recovered/Not Resolved]
  - Fatigue [Not Recovered/Not Resolved]
  - Fibromyalgia [Not Recovered/Not Resolved]
  - Gastroenteritis viral [Not Recovered/Not Resolved]
  - Glossodynia [Not Recovered/Not Resolved]
  - Hypertension [Not Recovered/Not Resolved]
  - Hypocalcaemia [Not Recovered/Not Resolved]
  - Hypokalaemia [Not Recovered/Not Resolved]
  - Hypotension [Not Recovered/Not Resolved]
  - Immunodeficiency [Not Recovered/Not Resolved]
  - Infection [Not Recovered/Not Resolved]
  - Joint destruction [Not Recovered/Not Resolved]
  - Limb discomfort [Not Recovered/Not Resolved]
  - Loss of consciousness [Not Recovered/Not Resolved]
  - Loss of personal independence in daily activities [Not Recovered/Not Resolved]
  - Mobility decreased [Not Recovered/Not Resolved]
  - Nausea [Not Recovered/Not Resolved]
  - Obesity [Not Recovered/Not Resolved]
  - Oedema [Not Recovered/Not Resolved]
  - Pain [Not Recovered/Not Resolved]
  - Pemphigus [Not Recovered/Not Resolved]
  - Pleural effusion [Not Recovered/Not Resolved]
  - Polyarthritis [Not Recovered/Not Resolved]
  - Psoriasis [Not Recovered/Not Resolved]
  - Pulmonary fibrosis [Not Recovered/Not Resolved]
  - Pyrexia [Not Recovered/Not Resolved]
  - Red blood cell sedimentation rate abnormal [Not Recovered/Not Resolved]
  - Septic shock [Not Recovered/Not Resolved]
  - Swelling [Not Recovered/Not Resolved]
  - Synovitis [Not Recovered/Not Resolved]
  - Systemic lupus erythematosus [Not Recovered/Not Resolved]
  - Vomiting [Not Recovered/Not Resolved]
  - Foot deformity [Not Recovered/Not Resolved]
  - Arthritis [Not Recovered/Not Resolved]
  - Anti-cyclic citrullinated peptide antibody positive [Not Recovered/Not Resolved]
  - Hand deformity [Not Recovered/Not Resolved]
  - Malaise [Not Recovered/Not Resolved]
  - Rheumatoid factor positive [Not Recovered/Not Resolved]
  - Rheumatoid arthritis [Not Recovered/Not Resolved]
  - Nodule [Not Recovered/Not Resolved]
  - Wheelchair user [Not Recovered/Not Resolved]
  - Foot operation [Not Recovered/Not Resolved]
  - Ankle arthroplasty [Not Recovered/Not Resolved]
  - Product use issue [Unknown]
  - Drug intolerance [Unknown]
  - Therapeutic product effect decreased [Unknown]
  - Contraindicated product administered [Unknown]
  - Drug ineffective [Unknown]
  - Drug tolerance [Unknown]
  - Off label use [Unknown]
  - Intentional product use issue [Unknown]
  - Therapy non-responder [Unknown]
